FAERS Safety Report 19441781 (Version 1)
Quarter: 2021Q2

REPORT INFORMATION
  Report Type: Report from Study
  Country: CA (occurrence: CA)
  Receive Date: 20210621
  Receipt Date: 20210621
  Transmission Date: 20210717
  Serious: Yes (Life-Threatening)
  Sender: FDA-Public Use
  Company Number: CA-JNJFOC-20210622713

PATIENT
  Age: 24 Year
  Sex: Male
  Weight: 66 kg

DRUGS (1)
  1. STELARA [Suspect]
     Active Substance: USTEKINUMAB
     Indication: CROHN^S DISEASE
     Dosage: ON 10?JUN?2021, THE PATIENT RECEIVED 1TH 390 MG USTEKINUMAB INFUSION.
     Route: 042
     Dates: start: 20210610

REACTIONS (3)
  - Infusion related reaction [Recovering/Resolving]
  - Off label use [Unknown]
  - Incorrect drug administration rate [Unknown]

NARRATIVE: CASE EVENT DATE: 20210610
